FAERS Safety Report 6554998-6 (Version None)
Quarter: 2010Q1

REPORT INFORMATION
  Report Type: 
  Country: None (occurrence: None)
  Receive Date: 20100126
  Receipt Date: 20100126
  Transmission Date: 20100710
  Serious: Yes (Life-Threatening, Hospitalization)
  Sender: FDA-Public Use
  Company Number: None

PATIENT
  Age: 70 Year
  Sex: Male
  Weight: 77.1115 kg

DRUGS (7)
  1. PROVIGIL [Suspect]
     Indication: FATIGUE
     Dosage: 300 MG ONCE DAILY PO
     Route: 048
     Dates: start: 20100104, end: 20100117
  2. PROVIGIL [Suspect]
     Indication: SOMNOLENCE
     Dosage: 300 MG ONCE DAILY PO
     Route: 048
     Dates: start: 20100104, end: 20100117
  3. COUMADIN [Concomitant]
  4. AMBIEN CR [Concomitant]
  5. TYLENOL-500 [Concomitant]
  6. AMIODARONE [Concomitant]
  7. LEXAPRO [Concomitant]

REACTIONS (5)
  - BLOOD PRESSURE INCREASED [None]
  - CEREBRAL HAEMORRHAGE [None]
  - DEPRESSION [None]
  - INTERNATIONAL NORMALISED RATIO INCREASED [None]
  - SENSORY LOSS [None]
